FAERS Safety Report 4942222-7 (Version None)
Quarter: 2006Q1

REPORT INFORMATION
  Report Type: 
  Country: None (occurrence: None)
  Receive Date: 20060313
  Receipt Date: 20050916
  Transmission Date: 20060701
  Serious: No
  Sender: FDA-Public Use
  Company Number: US-GLAXOSMITHKLINE-A0574609A

PATIENT
  Age: 49 Year
  Sex: Male

DRUGS (3)
  1. NICORETTE (ORANGE) [Suspect]
     Dates: end: 20050916
  2. MORPHINE [Concomitant]
     Indication: PAIN MANAGEMENT
  3. TRILEPTAL [Concomitant]
     Indication: DEPRESSION

REACTIONS (8)
  - DYSPEPSIA [None]
  - MALAISE [None]
  - ORAL PRURITUS [None]
  - PARAESTHESIA [None]
  - PARAESTHESIA ORAL [None]
  - THROAT IRRITATION [None]
  - TOOTHACHE [None]
  - VOMITING [None]
